FAERS Safety Report 16487233 (Version 1)
Quarter: 2019Q2

REPORT INFORMATION
  Report Type: Spontaneous
  Country: CN (occurrence: CN)
  Receive Date: 20190627
  Receipt Date: 20190627
  Transmission Date: 20190711
  Serious: Yes (Other)
  Sender: FDA-Public Use
  Company Number: PHHY2019CN144426

PATIENT
  Age: 43 Year
  Sex: Female

DRUGS (1)
  1. PIPERACILLIN AND TAZOBACTAM [Suspect]
     Active Substance: PIPERACILLIN SODIUM\TAZOBACTAM SODIUM
     Indication: ANTIBIOTIC THERAPY
     Dosage: 4.5 G, Q8H
     Route: 042

REACTIONS (7)
  - Abdominal infection [Unknown]
  - Blood pressure decreased [Unknown]
  - Dyspnoea [Unknown]
  - Septic shock [Unknown]
  - Pyrexia [Unknown]
  - Feeling abnormal [Unknown]
  - Cyanosis [Unknown]
